FAERS Safety Report 23408418 (Version 1)
Quarter: 2024Q1

REPORT INFORMATION
  Report Type: Spontaneous
  Country: KR (occurrence: KR)
  Receive Date: 20240117
  Receipt Date: 20240117
  Transmission Date: 20240410
  Serious: Yes (Other)
  Sender: FDA-Public Use
  Company Number: KR-OPELLA-2024OHG001387

PATIENT
  Age: 33 Year
  Sex: Male

DRUGS (1)
  1. XYZAL [Suspect]
     Active Substance: LEVOCETIRIZINE DIHYDROCHLORIDE
     Indication: Nasopharyngitis
     Route: 048
     Dates: start: 20181001, end: 20181001

REACTIONS (3)
  - Angioedema [Recovered/Resolved]
  - Urticaria [Recovered/Resolved]
  - Off label use [Recovered/Resolved]

NARRATIVE: CASE EVENT DATE: 20181001
